FAERS Safety Report 14828708 (Version 1)
Quarter: 2018Q2

REPORT INFORMATION
  Report Type: Spontaneous
  Country: US (occurrence: US)
  Receive Date: 20180430
  Receipt Date: 20180430
  Transmission Date: 20180711
  Serious: No
  Sender: FDA-Public Use
  Company Number: US-FRESENIUS KABI-FK201805200

PATIENT
  Age: 63 Year
  Sex: Male

DRUGS (1)
  1. GANCICLOVIR FOR INJECTION, USP [Suspect]
     Active Substance: GANCICLOVIR
     Indication: PRODUCT USED FOR UNKNOWN INDICATION
     Route: 042

REACTIONS (3)
  - Injection site extravasation [Unknown]
  - Injection site warmth [Unknown]
  - Administration site erythema [Unknown]

NARRATIVE: CASE EVENT DATE: 20180425
